FAERS Safety Report 25919188 (Version 1)
Quarter: 2025Q4

REPORT INFORMATION
  Report Type: Spontaneous
  Country: US (occurrence: None)
  Receive Date: 20251013
  Receipt Date: 20251013
  Transmission Date: 20260118
  Serious: Yes (Other)
  Sender: FDA-CTU
  Company Number: None

PATIENT
  Age: 59 Year
  Sex: Female
  Weight: 67.5 kg

DRUGS (2)
  1. CYMBALTA [Suspect]
     Active Substance: DULOXETINE HYDROCHLORIDE
     Indication: Panic disorder
     Dates: start: 20010101, end: 20240601
  2. BISOPROLOL FUMARATE\HYDROCHLOROTHIAZIDE [Concomitant]
     Active Substance: BISOPROLOL FUMARATE\HYDROCHLOROTHIAZIDE

REACTIONS (14)
  - Drug withdrawal syndrome [None]
  - Anxiety [None]
  - Hyperacusis [None]
  - Electric shock sensation [None]
  - Insomnia [None]
  - Tinnitus [None]
  - Agitation [None]
  - Dyskinesia [None]
  - Vision blurred [None]
  - Presyncope [None]
  - Dizziness [None]
  - Nausea [None]
  - Drug rechallenge positive [None]
  - Condition aggravated [None]

NARRATIVE: CASE EVENT DATE: 20240830
